FAERS Safety Report 7001877-6 (Version None)
Quarter: 2010Q3

REPORT INFORMATION
  Report Type: 
  Country: None (occurrence: None)
  Receive Date: 20100920
  Receipt Date: 20100914
  Transmission Date: 20110219
  Serious: Yes (Disabling)
  Sender: FDA-Public Use
  Company Number: GB-MERCK-1009GBR00052

PATIENT
  Sex: Female
  Weight: 69 kg

DRUGS (3)
  1. FOSAMAX [Suspect]
     Indication: OSTEOPOROSIS
     Route: 048
     Dates: start: 20090101, end: 20100801
  2. AMITRIPTYLINE HYDROCHLORIDE [Concomitant]
     Route: 048
     Dates: start: 20090101
  3. LANSOPRAZOLE [Concomitant]
     Route: 048
     Dates: start: 20070501

REACTIONS (3)
  - DYSPHAGIA [None]
  - LIP SWELLING [None]
  - THROAT TIGHTNESS [None]
